FAERS Safety Report 21594937 (Version 2)
Quarter: 2023Q1

REPORT INFORMATION
  Report Type: Report from Study
  Country: US (occurrence: US)
  Receive Date: 20221115
  Receipt Date: 20230130
  Transmission Date: 20230418
  Serious: No
  Sender: FDA-Public Use
  Company Number: US-ABBVIE-4198894

PATIENT
  Sex: Male

DRUGS (1)
  1. IMBRUVICA [Suspect]
     Active Substance: IBRUTINIB
     Indication: Graft versus host disease
     Route: 048

REACTIONS (2)
  - Diabetes mellitus [Unknown]
  - Skin ulcer [Unknown]
